FAERS Safety Report 24853878 (Version 1)
Quarter: 2025Q1

REPORT INFORMATION
  Report Type: Other
  Country: GB (occurrence: GB)
  Receive Date: 20250117
  Receipt Date: 20250117
  Transmission Date: 20250409
  Serious: Yes (Other)
  Sender: GLENMARK
  Company Number: GB-MHRA-TPP33770301C3020662YC1736325823740

PATIENT

DRUGS (3)
  1. MONTELUKAST SODIUM [Suspect]
     Active Substance: MONTELUKAST SODIUM
     Indication: Ill-defined disorder
     Route: 065
     Dates: start: 20241018
  2. PULMICORT TURBUHALER [Concomitant]
     Active Substance: BUDESONIDE
     Indication: Ill-defined disorder
     Dosage: 1 DOSAGE FORM, BID (INHALE ONE DOSE TWICE DAILY) (SPECIFIC MP GROUP PGR5422545)
     Dates: start: 20210323
  3. ALBUTEROL [Concomitant]
     Active Substance: ALBUTEROL
     Indication: Ill-defined disorder
     Dates: start: 20220816

REACTIONS (1)
  - Mood altered [Recovered/Resolved]
